FAERS Safety Report 16778773 (Version 2)
Quarter: 2020Q1

REPORT INFORMATION
  Report Type: Report from Study
  Country: None (occurrence: US)
  Receive Date: 20190906
  Receipt Date: 20200327
  Transmission Date: 20200409
  Serious: Yes (Other)
  Sender: FDA-Public Use
  Company Number: US-ABBVIE-19K-163-2896542-00

PATIENT
  Sex: Female
  Weight: 64.92 kg

DRUGS (10)
  1. AMLODIPINE [Concomitant]
     Active Substance: AMLODIPINE BESYLATE
     Indication: HYPERTENSION
  2. OMEPRAZOLE. [Concomitant]
     Active Substance: OMEPRAZOLE
     Indication: DUODENAL ULCER
  3. PREDNISONE. [Concomitant]
     Active Substance: PREDNISONE
     Indication: CROHN^S DISEASE
  4. POTASSIUM [Concomitant]
     Active Substance: POTASSIUM
     Indication: BLOOD POTASSIUM DECREASED
  5. CARAFATE [Concomitant]
     Active Substance: SUCRALFATE
     Indication: DUODENAL ULCER
  6. HYDROCODONE [Concomitant]
     Active Substance: HYDROCODONE
     Indication: NECK PAIN
  7. HUMIRA [Suspect]
     Active Substance: ADALIMUMAB
     Indication: CROHN^S DISEASE
     Route: 058
  8. LOSARTAN W/HIDROCLOROTIAZIDA [Concomitant]
     Active Substance: HYDROCHLOROTHIAZIDE\LOSARTAN
     Indication: HYPERTENSION
  9. LEVOTHYROXINE. [Concomitant]
     Active Substance: LEVOTHYROXINE
     Indication: HYPOTHYROIDISM
  10. HYDROCODONE [Concomitant]
     Active Substance: HYDROCODONE
     Indication: BACK PAIN

REACTIONS (13)
  - Duodenal ulcer [Recovered/Resolved]
  - Product administration error [Unknown]
  - Cerebrovascular accident [Recovered/Resolved with Sequelae]
  - Depression [Recovering/Resolving]
  - Carpal tunnel syndrome [Recovered/Resolved]
  - Pain in extremity [Recovered/Resolved]
  - Dupuytren^s contracture [Recovered/Resolved]
  - Speech disorder [Recovered/Resolved]
  - Product storage error [Unknown]
  - Dysgraphia [Not Recovered/Not Resolved]
  - Fall [Recovering/Resolving]
  - Fall [Recovered/Resolved]
  - Dysphonia [Not Recovered/Not Resolved]

NARRATIVE: CASE EVENT DATE: 2015
